FAERS Safety Report 12319899 (Version 1)
Quarter: 2016Q2

REPORT INFORMATION
  Report Type: Spontaneous
  Country: US (occurrence: US)
  Receive Date: 20160429
  Receipt Date: 20160429
  Transmission Date: 20160815
  Serious: No
  Sender: FDA-Public Use
  Company Number: US-ROCHE-1580963

PATIENT
  Age: 75 Year
  Sex: Female
  Weight: 63.56 kg

DRUGS (1)
  1. AVASTIN [Suspect]
     Active Substance: BEVACIZUMAB
     Indication: NEOPLASM MALIGNANT
     Route: 042
     Dates: start: 20150102

REACTIONS (2)
  - Dysphonia [Unknown]
  - Aphonia [Unknown]

NARRATIVE: CASE EVENT DATE: 20150423
